FAERS Safety Report 8086970-1 (Version None)
Quarter: 2012Q1

REPORT INFORMATION
  Report Type: 
  Country: None (occurrence: None)
  Receive Date: 20120128
  Receipt Date: 20110520
  Transmission Date: 20120608
  Serious: No
  Sender: FDA-Public Use
  Company Number: US-ABBOTT-11P-163-0727412-00

PATIENT
  Age: 48 Year
  Sex: Female

DRUGS (5)
  1. HUMIRA [Suspect]
     Indication: PSORIASIS
     Dates: start: 20110119
  2. SYNTHROID [Concomitant]
     Indication: HYPOTHYROIDISM
  3. HYDROCODONE BITARTRATE [Concomitant]
     Indication: ARTHRITIS
     Dosage: AS NEEDED- RARELY TAKES
  4. CLOBETASOL [Concomitant]
     Indication: PSORIASIS
     Dosage: 0.5 DAILY
  5. FLEXERIL [Concomitant]
     Indication: ARTHRALGIA

REACTIONS (2)
  - FATIGUE [None]
  - TREMOR [None]
